FAERS Safety Report 16608343 (Version 2)
Quarter: 2019Q4

REPORT INFORMATION
  Report Type: Spontaneous
  Country: GB (occurrence: GB)
  Receive Date: 20190722
  Receipt Date: 20191108
  Transmission Date: 20200122
  Serious: Yes (Other)
  Sender: FDA-Public Use
  Company Number: GB-AMGEN-GBRSP2019113939

PATIENT
  Age: 32 Year

DRUGS (5)
  1. KISQALI [Suspect]
     Active Substance: RIBOCICLIB
     Indication: BREAST CANCER
     Dosage: 600 MILLIGRAM, QD  (EVERY 21 DAYS OF 28 DAY CYCLE)
     Route: 065
     Dates: start: 201807
  2. LETROZOLE. [Suspect]
     Active Substance: LETROZOLE
     Indication: BREAST CANCER
     Dosage: 2.5 MILLIGRAM, QD
     Route: 065
     Dates: start: 201807
  3. XGEVA [Suspect]
     Active Substance: DENOSUMAB
     Indication: BREAST CANCER
     Dosage: 120 MILLIGRAM, QMO
     Route: 065
     Dates: start: 201807
  4. ZOLADEX [Suspect]
     Active Substance: GOSERELIN ACETATE
     Indication: BREAST CANCER
     Dosage: 3.6 MG, Q4W
     Route: 058
     Dates: start: 201807
  5. ADCAL D3 [Concomitant]
     Active Substance: CALCIUM CARBONATE\CHOLECALCIFEROL
     Indication: PRODUCT USED FOR UNKNOWN INDICATION
     Dosage: UNK
     Route: 065
     Dates: start: 201807

REACTIONS (5)
  - Nausea [Recovered/Resolved]
  - Neutropenia [Unknown]
  - Bone lesion [Unknown]
  - Lethargy [Unknown]
  - Arthralgia [Unknown]

NARRATIVE: CASE EVENT DATE: 201807
